FAERS Safety Report 13125278 (Version 1)
Quarter: 2017Q1

REPORT INFORMATION
  Report Type: Spontaneous
  Country: US (occurrence: US)
  Receive Date: 20170118
  Receipt Date: 20170118
  Transmission Date: 20170428
  Serious: No
  Sender: FDA-Public Use
  Company Number: US-BIOGEN-2017BI00342941

PATIENT
  Age: 30 Year
  Sex: Female

DRUGS (2)
  1. TECFIDERA [Suspect]
     Active Substance: DIMETHYL FUMARATE
     Indication: MULTIPLE SCLEROSIS
     Route: 065
     Dates: end: 201608
  2. TECFIDERA [Suspect]
     Active Substance: DIMETHYL FUMARATE
     Route: 065
     Dates: start: 201610

REACTIONS (6)
  - Fall [Unknown]
  - Asthenia [Unknown]
  - Drug dose omission [Unknown]
  - Memory impairment [Unknown]
  - Dysphemia [Unknown]
  - Malaise [Unknown]

NARRATIVE: CASE EVENT DATE: 20170112
